FAERS Safety Report 9146064 (Version 1)
Quarter: 2013Q1

REPORT INFORMATION
  Report Type: Spontaneous
  Country: US (occurrence: None)
  Receive Date: 20130131
  Receipt Date: 20130131
  Transmission Date: 20140127
  Serious: Yes (Death, Other)
  Sender: FDA-Public Use
  Company Number: TPA2013A01072

PATIENT
  Age: 67 Year
  Sex: Male

DRUGS (2)
  1. ACTOS (PIOGLITAZONE HYDROCHLORIDE) [Suspect]
     Indication: TYPE 2 DIABETES MELLITUS
     Dosage: /  / 2003  -  /  / 2004
     Dates: start: 2003, end: 2004
  2. FORTAMET [Concomitant]

REACTIONS (1)
  - Bladder cancer [None]
